FAERS Safety Report 22394694 (Version 1)
Quarter: 2023Q2

REPORT INFORMATION
  Report Type: Spontaneous
  Country: US (occurrence: None)
  Receive Date: 20230531
  Receipt Date: 20230531
  Transmission Date: 20230722
  Serious: Yes (Other)
  Sender: FDA-Public Use
  Company Number: None

PATIENT
  Sex: Male

DRUGS (6)
  1. ORENCIA [Suspect]
     Active Substance: ABATACEPT
     Indication: Rheumatoid arthritis
     Dosage: FREQUENCY : WEEKLY;?
     Route: 058
     Dates: start: 20220628
  2. ORENCIA [Suspect]
     Active Substance: ABATACEPT
     Dosage: OTHER QUANTITY : 1 PEN;?FREQUENCY : WEEKLY;?
     Route: 058
  3. METFORMIN [Concomitant]
  4. PHENTERMINE [Concomitant]
  5. TOPAMAX [Concomitant]
     Active Substance: TOPIRAMATE
  6. TRAMADOL HCL [Concomitant]

REACTIONS (3)
  - Pain [None]
  - Loss of personal independence in daily activities [None]
  - Therapy interrupted [None]
